FAERS Safety Report 5323873-7 (Version None)
Quarter: 2007Q2

REPORT INFORMATION
  Report Type: 
  Country: None (occurrence: None)
  Receive Date: 20070220
  Receipt Date: 20070109
  Transmission Date: 20071010
  Serious: No
  Sender: FDA-Public Use
  Company Number: WAES 0701USA01001

PATIENT
  Age: 45 Year
  Sex: Female

DRUGS (7)
  1. JANUVIA [Suspect]
     Indication: DRUG USE FOR UNKNOWN INDICATION
     Dosage: 100MG;DAILY;PO
     Route: 048
     Dates: start: 20061222, end: 20061227
  2. GLUCOTROL [Concomitant]
  3. HUMULIN R [Concomitant]
  4. PROTONIX [Concomitant]
  5. ENALAPRIL MALEATE [Concomitant]
  6. LOVASTATIN [Concomitant]
  7. METFORMIN HCL [Concomitant]

REACTIONS (2)
  - MUSCLE SPASMS [None]
  - RASH [None]
